FAERS Safety Report 19453648 (Version 1)
Quarter: 2021Q2

REPORT INFORMATION
  Report Type: Spontaneous
  Country: IT (occurrence: IT)
  Receive Date: 20210623
  Receipt Date: 20210623
  Transmission Date: 20210717
  Serious: Yes (Hospitalization, Other)
  Sender: FDA-Public Use
  Company Number: IT-SA-2021SA199086

PATIENT
  Age: 67 Year
  Sex: Male

DRUGS (3)
  1. OXALIPLATIN. [Suspect]
     Active Substance: OXALIPLATIN
     Indication: COLON CANCER
     Dosage: 260 MG, QCY
     Route: 042
     Dates: start: 20210504
  2. CAPECITABINE. [Suspect]
     Active Substance: CAPECITABINE
     Indication: COLON CANCER
     Dosage: 2000 MG, QCY
     Route: 048
     Dates: start: 20210504
  3. MITOMYCIN. [Concomitant]
     Active Substance: MITOMYCIN
     Indication: BLADDER NEOPLASM
     Dosage: 40 MG, QCY
     Route: 043
     Dates: start: 20210524, end: 20210524

REACTIONS (3)
  - Drug hypersensitivity [Recovering/Resolving]
  - Respiratory failure [Recovering/Resolving]
  - Angioedema [Recovering/Resolving]

NARRATIVE: CASE EVENT DATE: 20210524
